FAERS Safety Report 9557004 (Version 1)
Quarter: 2013Q3

REPORT INFORMATION
  Report Type: Spontaneous
  Country: JP (occurrence: JP)
  Receive Date: 20130926
  Receipt Date: 20130926
  Transmission Date: 20140515
  Serious: Yes (Other)
  Sender: FDA-Public Use
  Company Number: PHHY2013JP104901

PATIENT
  Age: 70 Year
  Sex: Male

DRUGS (13)
  1. ETOPOSIDE SANDOZ [Suspect]
     Indication: STEM CELL TRANSPLANT
     Route: 042
  2. ETOPOSIDE SANDOZ [Suspect]
     Indication: B-CELL LYMPHOMA
  3. CARBOPLATIN SANDOZ [Suspect]
     Indication: STEM CELL TRANSPLANT
  4. CYTARABINE [Suspect]
  5. VINCRISTINE [Suspect]
     Indication: B-CELL LYMPHOMA
  6. DOXORUBICIN [Suspect]
     Indication: B-CELL LYMPHOMA
  7. PREDNISOLONE [Suspect]
     Indication: B-CELL LYMPHOMA
  8. DEXAMETHASONE [Suspect]
     Indication: B-CELL LYMPHOMA
  9. RITUXIMAB [Suspect]
     Indication: B-CELL LYMPHOMA
  10. CLADRIBINE [Suspect]
     Indication: B-CELL LYMPHOMA
  11. RANIMUSTINE [Suspect]
     Indication: STEM CELL TRANSPLANT
  12. CYCLOPHOSPHAMIDE [Suspect]
     Indication: B-CELL LYMPHOMA
  13. CYCLOPHOSPHAMIDE [Suspect]
     Indication: STEM CELL TRANSPLANT

REACTIONS (1)
  - Myelodysplastic syndrome [Recovering/Resolving]
